FAERS Safety Report 4701238-6 (Version None)
Quarter: 2005Q2

REPORT INFORMATION
  Report Type: 
  Country: None (occurrence: None)
  Receive Date: 20050628
  Receipt Date: 20050613
  Transmission Date: 20051028
  Serious: Yes (Hospitalization, Disabling)
  Sender: FDA-Public Use
  Company Number: JP-MERCK-0506USA03737

PATIENT
  Age: 69 Year
  Sex: Male
  Weight: 51 kg

DRUGS (10)
  1. PLETAL [Concomitant]
     Route: 048
     Dates: end: 20050416
  2. NITRODERM [Concomitant]
     Route: 065
  3. PANALDINE [Concomitant]
     Route: 048
     Dates: end: 20050416
  4. ASPIRIN [Concomitant]
     Route: 048
     Dates: end: 20050416
  5. CALTAN [Concomitant]
     Indication: SECONDARY HYPERTHYROIDISM
     Route: 048
     Dates: end: 20050417
  6. PEPCID [Suspect]
     Route: 048
     Dates: end: 20050417
  7. LASIX [Concomitant]
     Indication: RENAL FAILURE CHRONIC
     Route: 048
     Dates: end: 20050417
  8. ALLEGRA [Concomitant]
     Route: 048
     Dates: end: 20050417
  9. AMOBAN [Concomitant]
     Indication: INSOMNIA
     Route: 048
     Dates: end: 20050417
  10. ALFAROL [Concomitant]
     Indication: SECONDARY HYPERTHYROIDISM
     Route: 048
     Dates: end: 20050417

REACTIONS (9)
  - BLOOD GLUCOSE INCREASED [None]
  - DEPRESSED LEVEL OF CONSCIOUSNESS [None]
  - HAEMOPNEUMOTHORAX [None]
  - HYPOCALCAEMIA [None]
  - HYPOTENSION [None]
  - HYPOXIC ENCEPHALOPATHY [None]
  - LIVER DISORDER [None]
  - PLEURAL EFFUSION [None]
  - RESPIRATORY FAILURE [None]
